FAERS Safety Report 5223336-3 (Version None)
Quarter: 2007Q1

REPORT INFORMATION
  Report Type: 
  Country: None (occurrence: None)
  Receive Date: 20061201
  Receipt Date: 20060724
  Transmission Date: 20070707
  Serious: No
  Sender: FDA-Public Use
  Company Number: 2005PV002250

PATIENT
  Age: 65 Year
  Sex: Female
  Weight: 85.7298 kg

DRUGS (7)
  1. BYETTA [Suspect]
     Indication: DIABETES MELLITUS NON-INSULIN-DEPENDENT
     Dosage: SEE IMAGE
     Route: 058
     Dates: start: 20050819, end: 20051001
  2. BYETTA [Suspect]
     Indication: DIABETES MELLITUS NON-INSULIN-DEPENDENT
     Dosage: SEE IMAGE
     Route: 058
     Dates: start: 20051001
  3. BYETTA [Suspect]
  4. METFORMIN HCL [Concomitant]
  5. AVANDIA [Concomitant]
  6. PRANDIN [Concomitant]
  7. GLIMEPIRIDE [Concomitant]

REACTIONS (4)
  - ANOREXIA [None]
  - FEELING ABNORMAL [None]
  - HYPERPHAGIA [None]
  - WEIGHT DECREASED [None]
